FAERS Safety Report 16884917 (Version 1)
Quarter: 2019Q4

REPORT INFORMATION
  Report Type: Spontaneous
  Country: US (occurrence: US)
  Receive Date: 20190808
  Receipt Date: 20190808
  Transmission Date: 20200122
  Serious: No
  Sender: FDA-Public Use
  Company Number: None

PATIENT
  Age: 77 Year
  Sex: Female

DRUGS (4)
  1. REQUIP [Concomitant]
     Active Substance: ROPINIROLE HYDROCHLORIDE
  2. GLATIRAMER 40MG PFS INJ  (12/BOX) [Suspect]
     Active Substance: GLATIRAMER
     Route: 058
     Dates: start: 201908
  3. LEXAPRO [Concomitant]
     Active Substance: ESCITALOPRAM OXALATE
  4. ATIVAN [Concomitant]
     Active Substance: LORAZEPAM

REACTIONS (1)
  - Inappropriate schedule of product administration [None]

NARRATIVE: CASE EVENT DATE: 20190808
